FAERS Safety Report 12614891 (Version 2)
Quarter: 2016Q3

REPORT INFORMATION
  Report Type: Report from Study
  Country: BE (occurrence: BE)
  Receive Date: 20160802
  Receipt Date: 20160817
  Transmission Date: 20161109
  Serious: Yes (Other)
  Sender: FDA-Public Use
  Company Number: BE-TAKEDA-2016MPI006858

PATIENT
  Age: 78 Year
  Sex: Female

DRUGS (1)
  1. VELCADE [Suspect]
     Active Substance: BORTEZOMIB
     Indication: PRODUCT USED FOR UNKNOWN INDICATION
     Dosage: 2.3 MG, UNK
     Route: 058

REACTIONS (2)
  - Diarrhoea [Recovering/Resolving]
  - Lyme disease [Unknown]

NARRATIVE: CASE EVENT DATE: 20160728
